FAERS Safety Report 8268264-4 (Version None)
Quarter: 2012Q2

REPORT INFORMATION
  Report Type: 
  Country: None (occurrence: None)
  Receive Date: 20120409
  Receipt Date: 20120403
  Transmission Date: 20120825
  Serious: Yes (Life-Threatening, Hospitalization)
  Sender: FDA-Public Use
  Company Number: PHHY2012ZA028530

PATIENT
  Age: 7 Year
  Sex: Female

DRUGS (2)
  1. VERAPAMIL [Suspect]
     Indication: VARICELLA
  2. ACYCLOVIR [Suspect]
     Indication: VARICELLA

REACTIONS (1)
  - DRUG DISPENSING ERROR [None]
